FAERS Safety Report 18801136 (Version 4)
Quarter: 2021Q1

REPORT INFORMATION
  Report Type: Spontaneous
  Country: US (occurrence: US)
  Receive Date: 20210128
  Receipt Date: 20210309
  Transmission Date: 20210419
  Serious: Yes (Other)
  Sender: FDA-Public Use
  Company Number: US-SA-2021SA026620

PATIENT
  Age: 85 Year
  Sex: Male

DRUGS (1)
  1. LANTUS [Suspect]
     Active Substance: INSULIN GLARGINE
     Indication: TYPE 2 DIABETES MELLITUS
     Dosage: 24? 30 UNITS EVERY NIGHT DEPENDING ON HIS SUGAR LEVELS, QD
     Route: 065

REACTIONS (3)
  - Blood glucose decreased [Unknown]
  - Depressed level of consciousness [Unknown]
  - Device issue [Unknown]

NARRATIVE: CASE EVENT DATE: 202012
